FAERS Safety Report 6184448-3 (Version None)
Quarter: 2009Q2

REPORT INFORMATION
  Report Type: 
  Country: None (occurrence: None)
  Receive Date: 20090508
  Receipt Date: 20090428
  Transmission Date: 20091009
  Serious: Yes (Hospitalization)
  Sender: FDA-Public Use
  Company Number: AU-WATSON-2009-02975

PATIENT
  Age: 16 Year
  Sex: Female

DRUGS (4)
  1. HYDROXYCHLOROQUINE SULFATE (WATSON LABORATORIES) [Suspect]
     Indication: POISONING DELIBERATE
     Dosage: 20 G, SINGLE
     Route: 048
     Dates: start: 20090101
  2. FOLIC ACID [Suspect]
     Indication: POISONING DELIBERATE
     Dosage: UP TO 500MG
     Route: 048
     Dates: start: 20090101
  3. METHOTREXATE [Suspect]
     Indication: POISONING DELIBERATE
     Dosage: UP TO 470MG
     Route: 048
     Dates: start: 20090101
  4. PREDNISOLONE (WATSON LABORATORIES) [Concomitant]
     Indication: POISONING DELIBERATE
     Dosage: UP TO 30MG
     Route: 048
     Dates: start: 20090101

REACTIONS (9)
  - ACIDOSIS [None]
  - CYANOSIS [None]
  - DEPRESSED LEVEL OF CONSCIOUSNESS [None]
  - ELECTROCARDIOGRAM QRS COMPLEX PROLONGED [None]
  - ELECTROCARDIOGRAM QT PROLONGED [None]
  - HYPOKALAEMIA [None]
  - HYPOTENSION [None]
  - INTENTIONAL OVERDOSE [None]
  - VENTRICULAR TACHYCARDIA [None]
